FAERS Safety Report 9956844 (Version 1)
Quarter: 2014Q1

REPORT INFORMATION
  Report Type: Report from Study
  Country: US (occurrence: US)
  Receive Date: 20140304
  Receipt Date: 20140304
  Transmission Date: 20141002
  Serious: No
  Sender: FDA-Public Use
  Company Number: US-ABBVIE-13P-163-1097175-00

PATIENT
  Age: 54 Year
  Sex: Female
  Weight: 69.01 kg

DRUGS (15)
  1. HUMIRA [Suspect]
     Indication: ARTHRITIS REACTIVE
     Dates: start: 201303
  2. KLONOPIN [Concomitant]
     Indication: DEPRESSION
  3. KLONOPIN [Concomitant]
     Indication: ANXIETY
  4. OXYCONTIN [Concomitant]
     Indication: PAIN
  5. CYMBALTA [Concomitant]
     Indication: DEPRESSION
  6. IMMUNOTHERAPY DRUGS UNDER TONGUE [Concomitant]
     Indication: HYPERSENSITIVITY
  7. SINGULAIR [Concomitant]
     Indication: HYPERSENSITIVITY
  8. ZYRTEC [Concomitant]
     Indication: HYPERSENSITIVITY
  9. DOXEPIN [Concomitant]
     Indication: INSOMNIA
  10. VERAMYST [Concomitant]
     Indication: HYPERSENSITIVITY
  11. WELLBUTRIN [Concomitant]
     Indication: PAIN
  12. PERCOCET [Concomitant]
     Indication: PAIN
  13. PROTONIX [Concomitant]
     Indication: GASTROOESOPHAGEAL REFLUX DISEASE
  14. PROTONIX [Concomitant]
     Indication: HIATUS HERNIA
  15. SUPRADEX [Concomitant]
     Indication: OTORRHOEA

REACTIONS (2)
  - Pain [Not Recovered/Not Resolved]
  - Rash erythematous [Recovering/Resolving]
